FAERS Safety Report 7911056-3 (Version None)
Quarter: 2011Q4

REPORT INFORMATION
  Report Type: 
  Country: None (occurrence: None)
  Receive Date: 20111114
  Receipt Date: 20111107
  Transmission Date: 20120403
  Serious: No
  Sender: FDA-Public Use
  Company Number: US-BIOGENIDEC-2011BI042237

PATIENT
  Sex: Male

DRUGS (2)
  1. AVONEX [Suspect]
     Indication: MULTIPLE SCLEROSIS
     Route: 030
     Dates: start: 20020201
  2. AVONEX [Suspect]
     Route: 030
     Dates: start: 20011220

REACTIONS (3)
  - MALAISE [None]
  - INFLUENZA LIKE ILLNESS [None]
  - TEMPERATURE INTOLERANCE [None]
